FAERS Safety Report 7492925-8 (Version None)
Quarter: 2011Q2

REPORT INFORMATION
  Report Type: 
  Country: None (occurrence: None)
  Receive Date: 20110520
  Receipt Date: 20110510
  Transmission Date: 20111010
  Serious: Yes (Death, Hospitalization)
  Sender: FDA-Public Use
  Company Number: US-BIOGENIDEC-2011BI015570

PATIENT
  Age: 77 Year
  Sex: Female

DRUGS (2)
  1. AVONEX [Suspect]
     Indication: MULTIPLE SCLEROSIS
     Route: 030
     Dates: start: 20061001, end: 20110406
  2. AVONEX [Suspect]
     Route: 030
     Dates: start: 20000420, end: 20060803

REACTIONS (2)
  - DEATH [None]
  - MULTIPLE SCLEROSIS [None]
